FAERS Safety Report 4368725-4 (Version None)
Quarter: 2004Q2

REPORT INFORMATION
  Report Type: 
  Country: None (occurrence: None)
  Receive Date: 20040528
  Receipt Date: 20040518
  Transmission Date: 20050107
  Serious: Yes (Life-Threatening, Disabling)
  Sender: FDA-Public Use
  Company Number: 01P-087-0114485-00

PATIENT
  Age: 22 Year
  Sex: Male

DRUGS (11)
  1. KALETRA [Suspect]
     Indication: HIV INFECTION
     Dosage: 6 CAPSULE, 1 IN 1 D, PER ORAL
     Route: 048
     Dates: start: 20001225
  2. NORVIR [Suspect]
     Indication: HIV INFECTION
     Dosage: 800 MG, 1 IN 1 D, PER ORAL
     Route: 048
     Dates: start: 19991101, end: 20001224
  3. ABACAVIR SULFATE [Suspect]
     Indication: HIV INFECTION
     Dosage: 600 MG, 1 IN 1 D, PER ORAL
     Route: 048
     Dates: start: 20000724, end: 20000725
  4. ABACAVIR SULFATE [Suspect]
     Indication: HIV INFECTION
     Dosage: 600 MG, 1 IN 1 D, PER ORAL
     Route: 048
     Dates: start: 20011020, end: 20011027
  5. INDINAVIR [Suspect]
     Indication: HIV INFECTION
     Dosage: 800 MG, 1 IN 1 D
     Dates: start: 20000318, end: 20000524
  6. EFAVIRENZ [Suspect]
     Indication: HIV INFECTION
     Dosage: 600 MG, 1 IN 1 D, PER ORAL
     Route: 048
     Dates: start: 20000724, end: 20000725
  7. EFAVIRENZ [Suspect]
     Indication: HIV INFECTION
     Dosage: 600 MG, 1 IN 1 D, PER ORAL
     Route: 048
     Dates: start: 20000925, end: 20001002
  8. SANILUVUDINE [Suspect]
     Indication: HIV INFECTION
     Dosage: 80 MG, PER ORAL
     Route: 048
     Dates: start: 20010401, end: 20011020
  9. COAGULATION FACTOR VIII [Concomitant]
  10. DIDANOSINE [Concomitant]
  11. SAQUINAVIR [Concomitant]

REACTIONS (10)
  - DIZZINESS [None]
  - FIBRIN DEGRADATION PRODUCTS INCREASED [None]
  - HEPATIC FUNCTION ABNORMAL [None]
  - INFLUENZA LIKE ILLNESS [None]
  - NAUSEA [None]
  - NERVOUS SYSTEM DISORDER [None]
  - PALPITATIONS [None]
  - PULMONARY HYPERTENSION [None]
  - TREMOR [None]
  - VISUAL DISTURBANCE [None]
